FAERS Safety Report 5292975-6 (Version None)
Quarter: 2007Q2

REPORT INFORMATION
  Report Type: 
  Country: None (occurrence: None)
  Receive Date: 20070411
  Receipt Date: 20070404
  Transmission Date: 20071010
  Serious: Yes (Other)
  Sender: FDA-Public Use
  Company Number: 2006UW28385

PATIENT
  Age: 61 Year
  Sex: Female
  Weight: 56 kg

DRUGS (5)
  1. NOLVADEX [Suspect]
     Indication: BREAST CANCER
     Route: 048
     Dates: start: 20051215
  2. HIGROTON [Concomitant]
     Indication: HYPERTENSION
     Route: 048
     Dates: start: 20050101
  3. ADALAT [Concomitant]
     Indication: HYPERTENSION
     Route: 048
     Dates: start: 20050101
  4. RENITEC [Concomitant]
     Indication: HYPERTENSION
     Route: 048
     Dates: start: 20050101, end: 20050101
  5. RENITEC [Concomitant]
     Route: 048
     Dates: start: 20051201

REACTIONS (11)
  - ABDOMINAL PAIN UPPER [None]
  - BLOOD PRESSURE ABNORMAL [None]
  - BLOOD PRESSURE INCREASED [None]
  - DYSPNOEA [None]
  - HOT FLUSH [None]
  - JOINT SWELLING [None]
  - MUSCLE SPASMS [None]
  - POLLAKIURIA [None]
  - PRURITUS GENITAL [None]
  - RASH [None]
  - WEIGHT INCREASED [None]
